FAERS Safety Report 7456560-X (Version None)
Quarter: 2011Q2

REPORT INFORMATION
  Report Type: 
  Country: None (occurrence: None)
  Receive Date: 20110503
  Receipt Date: 20110427
  Transmission Date: 20111010
  Serious: Yes (Other)
  Sender: FDA-Public Use
  Company Number: JP-PFIZER INC-2011058441

PATIENT
  Age: 54 Year
  Sex: Male
  Weight: 57 kg

DRUGS (11)
  1. MYSLEE [Concomitant]
     Dosage: 10 MG, 1X/DAY
     Route: 048
     Dates: start: 20090112
  2. SUNITINIB MALATE [Suspect]
     Indication: RENAL CELL CARCINOMA
     Dosage: 37.5 MG, 1X/DAY
     Route: 048
     Dates: start: 20091001, end: 20101003
  3. TAKEPRON [Concomitant]
     Indication: PROPHYLAXIS
     Dosage: 30 MG, 1X/DAY
     Route: 048
     Dates: start: 20100611
  4. THYRADIN S [Concomitant]
     Dosage: 50 UG, 1X/DAY
     Route: 048
     Dates: start: 20100107
  5. MYSLEE [Concomitant]
     Indication: INSOMNIA
     Dosage: 7.5 MG, 1X/DAY
     Route: 048
  6. ARTIST [Concomitant]
     Dosage: 10 MG, 1X/DAY
     Route: 048
     Dates: start: 20091019
  7. PASTARON [Concomitant]
     Dosage: UNK, AS NEEDED, SINGLE USE
     Route: 062
     Dates: start: 20100318
  8. METHYCOBAL [Concomitant]
     Dosage: 500 UG, 3X/DAY
     Route: 048
     Dates: start: 20100403
  9. CALBLOCK [Concomitant]
     Indication: HYPERTENSION
     Dosage: 16 MG, 1X/DAY
     Route: 048
  10. EVEROLIMUS [Suspect]
     Indication: RENAL CELL CARCINOMA
     Dosage: 10 MG, 1X/DAY
     Route: 048
     Dates: start: 20100621, end: 20100913
  11. DIOVAN [Concomitant]
     Indication: HYPERTENSION
     Dosage: 40 MG, 1X/DAY
     Route: 048

REACTIONS (1)
  - INTERSTITIAL LUNG DISEASE [None]
